FAERS Safety Report 4825488-3 (Version None)
Quarter: 2005Q4

REPORT INFORMATION
  Report Type: 
  Country: None (occurrence: None)
  Receive Date: 20051109
  Receipt Date: 20051026
  Transmission Date: 20060501
  Serious: Yes (Death, Other)
  Sender: FDA-Public Use
  Company Number: 2005-10-1920

PATIENT
  Sex: Male

DRUGS (8)
  1. ALBUTEROL SULFATE HFA [Suspect]
     Dosage: 100 MCG ORAL AER INH
     Route: 055
  2. BECLOMETHASONE DIPROPIONATE [Suspect]
     Dosage: 100 MCG ORAL AER INH
     Route: 055
  3. SPIRIVA [Suspect]
     Dosage: 18 MCG ORAL AER INH
     Route: 055
  4. BENDROFLUAZIDE [Suspect]
     Dosage: 2.5 MG
  5. CALCICHEW D3 (CALCIUM CARBONATE/CHOLECALCIFEROL) [Suspect]
  6. CALCIUM/VITAMIN D [Suspect]
  7. DOTHIEPIN HYDROCHLORIDE [Suspect]
     Dosage: 25 MG
  8. SALMETEROL [Suspect]
     Dosage: 25 MG ORAL AER INH
     Route: 055

REACTIONS (3)
  - CHRONIC OBSTRUCTIVE PULMONARY DISEASE [None]
  - LOWER RESPIRATORY TRACT INFECTION [None]
  - PULMONARY TUBERCULOSIS [None]
